FAERS Safety Report 26157841 (Version 1)
Quarter: 2025Q4

REPORT INFORMATION
  Report Type: Spontaneous
  Country: US (occurrence: None)
  Receive Date: 20251213
  Receipt Date: 20251213
  Transmission Date: 20260117
  Serious: Yes (Disabling)
  Sender: FDA-CTU
  Company Number: None

PATIENT
  Age: 75 Year
  Sex: Male
  Weight: 103.5 kg

DRUGS (12)
  1. HADLIMA [Suspect]
     Active Substance: ADALIMUMAB-BWWD
     Indication: Psoriasis
     Dosage: OTHER QUANTITY : 1 INJECTION(S);?OTHER FREQUENCY : EVERY TWO WEEKS;
     Route: 058
     Dates: start: 20250904, end: 20250919
  2. SEMAGLUTIDE 0.5MG/0.375ML INJ PEN 1.5ML [Concomitant]
  3. Lisinopril ALIROCUMAB 75MG/ML INJ 1ML PEN [Concomitant]
  4. CLOPIDOGREL 75MG TAB [Concomitant]
  5. FINASTERIDE [Concomitant]
     Active Substance: FINASTERIDE
  6. TAMSULOSIN [Concomitant]
     Active Substance: TAMSULOSIN
  7. PANTOPRAZOLE [Concomitant]
     Active Substance: PANTOPRAZOLE
  8. DULOXETINE 60MG CAP [Concomitant]
  9. DICLOFENAC NA 1% GEL 100GM [Concomitant]
  10. ERGOCALCIF 1,250MCG (D2-50,000UNIT) CAP [Concomitant]
  11. VITAMIN D [Concomitant]
     Active Substance: VITAMIN D NOS
  12. llegra 180 mg one day [Concomitant]

REACTIONS (3)
  - Muscular weakness [None]
  - Asthenia [None]
  - Diabetic neuropathy [None]

NARRATIVE: CASE EVENT DATE: 20250919
